FAERS Safety Report 18637962 (Version 1)
Quarter: 2020Q4

REPORT INFORMATION
  Report Type: Spontaneous
  Country: LU (occurrence: LU)
  Receive Date: 20201219
  Receipt Date: 20201219
  Transmission Date: 20210114
  Serious: Yes (Life-Threatening, Hospitalization)
  Sender: FDA-Public Use
  Company Number: LU-B.I. PHARMACEUTICALS,INC./RIDGEFIELD-2020-BI-069465

PATIENT
  Sex: Male

DRUGS (1)
  1. JARDIANCE [Suspect]
     Active Substance: EMPAGLIFLOZIN
     Indication: PRODUCT USED FOR UNKNOWN INDICATION
     Dosage: PATIENT TOOK JARDIANCE 10 MG DURING 4 DAYS BEFORE HOSPITAL ADMISSION
     Route: 065

REACTIONS (3)
  - Fluid imbalance [Recovered/Resolved]
  - Vomiting [Recovered/Resolved]
  - Paraesthesia [Recovered/Resolved]
